FAERS Safety Report 16589678 (Version 1)
Quarter: 2019Q3

REPORT INFORMATION
  Report Type: Report from Study
  Country: US (occurrence: US)
  Receive Date: 20190718
  Receipt Date: 20190718
  Transmission Date: 20191004
  Serious: Yes (Hospitalization)
  Sender: FDA-Public Use
  Company Number: US-SWEDISH ORPHAN BIOVITRUM-2019US0656

PATIENT
  Sex: Male

DRUGS (3)
  1. KINERET [Suspect]
     Active Substance: ANAKINRA
     Dosage: 16JUN2008 = 1.45 MG/KG/DAY (10.25 KG)?08DEC2008 = 1.41 MG/KG/DAY (10.55 KG)
     Dates: start: 20080616
  2. KINERET [Suspect]
     Active Substance: ANAKINRA
     Dosage: AT DISCHARGED: ANAKINRA DOSE INCREASED IN THE CONTEXT OF INFECTION 4 MG/KG/DAY X 1, THEN 3 MG /KG/DA
     Dates: start: 20081208
  3. KINERET [Suspect]
     Active Substance: ANAKINRA
     Indication: DEFICIENCY OF THE INTERLEUKIN-1 RECEPTOR ANTAGONIST
     Dosage: 08OCT2010: 1.09 MG/KG/DAY (WEIGHT = 8,21 KG)?06NOV2018: 1.08 MG/KG/DAY (WEIGHT = 8,27 KG)?04FEB2008:
     Dates: start: 20071008

REACTIONS (1)
  - Rotavirus infection [Unknown]

NARRATIVE: CASE EVENT DATE: 20090623
